FAERS Safety Report 17735148 (Version 1)
Quarter: 2020Q2

REPORT INFORMATION
  Report Type: Spontaneous
  Country: DE (occurrence: DE)
  Receive Date: 20200501
  Receipt Date: 20200501
  Transmission Date: 20200714
  Serious: Yes (Life-Threatening, Hospitalization, Other)
  Sender: FDA-Public Use
  Company Number: DE-B.I. PHARMACEUTICALS,INC./RIDGEFIELD-2020-12-021739

PATIENT
  Age: 65 Year
  Sex: Male
  Weight: 80 kg

DRUGS (2)
  1. GILOTRIF [Suspect]
     Active Substance: AFATINIB
     Indication: SMALL CELL CARCINOMA
     Route: 048
     Dates: start: 20200416, end: 20200419
  2. GILOTRIF [Suspect]
     Active Substance: AFATINIB
     Indication: SARCOMATOID CARCINOMA

REACTIONS (2)
  - Acute kidney injury [Not Recovered/Not Resolved]
  - Acute hepatic failure [Not Recovered/Not Resolved]

NARRATIVE: CASE EVENT DATE: 20200419
